FAERS Safety Report 25583579 (Version 3)
Quarter: 2025Q4

REPORT INFORMATION
  Report Type: Spontaneous
  Country: JP (occurrence: JP)
  Receive Date: 20250721
  Receipt Date: 20251029
  Transmission Date: 20260117
  Serious: Yes (Other)
  Sender: NOVO NORDISK
  Company Number: JP-NOVOPROD-1469068

PATIENT
  Age: 4 Year
  Sex: Female
  Weight: 11 kg

DRUGS (2)
  1. SOGROYA [Suspect]
     Active Substance: SOMAPACITAN-BECO
     Dosage: 1.8 MG, QW
     Route: 058
     Dates: start: 20250827
  2. SOGROYA [Suspect]
     Active Substance: SOMAPACITAN-BECO
     Indication: Growth hormone deficiency
     Dosage: 1.6 MG, QW
     Route: 058
     Dates: start: 20241114, end: 20250505

REACTIONS (2)
  - Muscle hypertrophy [Recovered/Resolved]
  - Fat tissue decreased [Recovered/Resolved]

NARRATIVE: CASE EVENT DATE: 20250503
